FAERS Safety Report 13881524 (Version 3)
Quarter: 2019Q2

REPORT INFORMATION
  Report Type: Spontaneous
  Country: US (occurrence: US)
  Receive Date: 20170818
  Receipt Date: 20190409
  Transmission Date: 20190711
  Serious: Yes (Death, Other)
  Sender: FDA-Public Use
  Company Number: US-PFIZER INC-2017356833

PATIENT
  Age: 71 Year
  Sex: Female

DRUGS (3)
  1. XGEVA [Concomitant]
     Active Substance: DENOSUMAB
     Indication: NEOPLASM MALIGNANT
     Dosage: 120 MG, MONTHLY (1 SHOT PER MONTH)
  2. FASLODEX [Concomitant]
     Active Substance: FULVESTRANT
     Indication: NEOPLASM MALIGNANT
     Dosage: 2 SHOTS PER MONTH (ALSO REPORTED AS ^250 MG^)
  3. IBRANCE [Suspect]
     Active Substance: PALBOCICLIB
     Indication: BREAST CANCER
     Dosage: 125 MG, CYCLIC (ONCE A DAY FOR 21 DAYS, 7 DAYS OFF)
     Route: 048
     Dates: start: 201512

REACTIONS (3)
  - Death [Fatal]
  - Fatigue [Recovered/Resolved]
  - Pain [Recovered/Resolved]
